FAERS Safety Report 5776200-5 (Version None)
Quarter: 2008Q2

REPORT INFORMATION
  Report Type: 
  Country: None (occurrence: None)
  Receive Date: 20080618
  Receipt Date: 20080613
  Transmission Date: 20081010
  Serious: Yes (Other)
  Sender: FDA-Public Use
  Company Number: US-RANBAXY-2008US-14666

PATIENT

DRUGS (5)
  1. ISOTRETINOIN [Suspect]
     Indication: ACNE
     Dosage: 40 MG, UNK
     Route: 048
     Dates: start: 20071221, end: 20080121
  2. ISOTRETINOIN [Suspect]
     Dosage: 40 MG, UNK
     Dates: start: 20080122, end: 20080404
  3. CLARAVIS CAPSULES [Suspect]
     Indication: ACNE
     Dosage: UNK
     Dates: start: 20071221, end: 20080121
  4. CLARAVIS CAPSULES [Suspect]
     Dosage: UNK
     Dates: start: 20080122, end: 20080404
  5. PHENYTEK [Suspect]
     Indication: DRUG USE FOR UNKNOWN INDICATION
     Route: 048

REACTIONS (2)
  - CONVULSION [None]
  - DRUG INTERACTION [None]
